FAERS Safety Report 9328381 (Version 1)
Quarter: 2013Q2

REPORT INFORMATION
  Report Type: Spontaneous
  Country: CA (occurrence: CA)
  Receive Date: 20130604
  Receipt Date: 20130604
  Transmission Date: 20140414
  Serious: Yes (Death, Hospitalization, Other)
  Sender: FDA-Public Use
  Company Number: CA-BAXTER-2013BAX019961

PATIENT
  Sex: Female

DRUGS (3)
  1. DIANEAL PD4 SOLUTION WITH 1.5% DEXTROSE AND 2.5 MEQ/L CALCIUM [Suspect]
     Indication: PERITONEAL DIALYSIS
     Route: 033
  2. EXTRANEAL [Suspect]
     Indication: PERITONEAL DIALYSIS
     Route: 033
  3. INSULIN [Concomitant]
     Indication: DIABETES MELLITUS
     Route: 065

REACTIONS (18)
  - Death [Fatal]
  - Respiratory arrest [Unknown]
  - Myocardial infarction [Unknown]
  - Cardiac failure [Unknown]
  - Pain in extremity [Unknown]
  - Peritonitis [Unknown]
  - Peritonitis [Unknown]
  - Aggression [Unknown]
  - Incoherent [Unknown]
  - Refusal of treatment by patient [Unknown]
  - Hypophagia [Unknown]
  - Swelling [Unknown]
  - Movement disorder [Unknown]
  - General physical health deterioration [Unknown]
  - Regurgitation [Unknown]
  - Malaise [Unknown]
  - Discomfort [Unknown]
  - Fluid retention [Unknown]
